FAERS Safety Report 19674670 (Version 1)
Quarter: 2021Q3

REPORT INFORMATION
  Report Type: Spontaneous
  Country: RU (occurrence: RU)
  Receive Date: 20210809
  Receipt Date: 20210809
  Transmission Date: 20211014
  Serious: Yes (Other)
  Sender: FDA-Public Use
  Company Number: RU-BAYER-2021-185504

PATIENT
  Age: 50 Year
  Sex: Female

DRUGS (1)
  1. MIRENA [Suspect]
     Active Substance: LEVONORGESTREL
     Indication: THERAPEUTIC PROCEDURE
     Dosage: 20 ?G, CONT
     Route: 015
     Dates: start: 20190831

REACTIONS (3)
  - Erythema multiforme [None]
  - Pemphigus [None]
  - Off label use of device [None]

NARRATIVE: CASE EVENT DATE: 202001
